FAERS Safety Report 24799988 (Version 1)
Quarter: 2024Q4

REPORT INFORMATION
  Report Type: Spontaneous
  Country: US (occurrence: None)
  Receive Date: 20241231
  Receipt Date: 20241231
  Transmission Date: 20250114
  Serious: No
  Sender: Public
  Company Number: None

PATIENT
  Age: 66 Year
  Sex: Female
  Weight: 49.5 kg

DRUGS (9)
  1. CAPLYTA [Suspect]
     Active Substance: LUMATEPERONE
     Indication: Bipolar I disorder
     Dosage: OTHER QUANTITY : 1 CAPSULE(S);?FREQUENCY : DAILY;?
     Route: 048
  2. CAPLYTA [Suspect]
     Active Substance: LUMATEPERONE
     Indication: Depression
  3. WELLBUTRIN [Concomitant]
     Active Substance: BUPROPION HYDROCHLORIDE
  4. Methylinphdate [Concomitant]
  5. ABILIFY [Concomitant]
     Active Substance: ARIPIPRAZOLE
  6. ADEMETIONINE [Concomitant]
     Active Substance: ADEMETIONINE
  7. CALCIUM\MAGNESIUM [Concomitant]
     Active Substance: CALCIUM\MAGNESIUM
  8. VITAMINS [Concomitant]
     Active Substance: VITAMINS
  9. VITAMIN B COMPLEX [Concomitant]
     Active Substance: CYANOCOBALAMIN\DEXPANTHENOL\NIACINAMIDE\PYRIDOXINE HYDROCHLORIDE\RIBOFLAVIN 5^-PHOSPHATE SODIUM\THIA

REACTIONS (9)
  - Nausea [None]
  - Dizziness [None]
  - Gait disturbance [None]
  - Brain fog [None]
  - Vision blurred [None]
  - Decreased appetite [None]
  - Impaired driving ability [None]
  - Feeling drunk [None]
  - Orthostatic hypotension [None]

NARRATIVE: CASE EVENT DATE: 20241227
